FAERS Safety Report 8407793-7 (Version None)
Quarter: 2012Q2

REPORT INFORMATION
  Report Type: 
  Country: None (occurrence: None)
  Receive Date: 20120604
  Receipt Date: 20120523
  Transmission Date: 20120825
  Serious: Yes (Hospitalization)
  Sender: FDA-Public Use
  Company Number: FR-VIIV HEALTHCARE LIMITED-B0803224A

PATIENT
  Sex: Male

DRUGS (7)
  1. ISENTRESS [Suspect]
     Indication: HIV INFECTION
     Route: 048
     Dates: start: 20110922, end: 20111017
  2. ABACAVIR SULFATE/LAMIVUDINE [Concomitant]
     Indication: HIV INFECTION
     Route: 048
     Dates: start: 20110922, end: 20111017
  3. BACTRIM DS [Concomitant]
     Route: 048
     Dates: start: 20110919, end: 20111014
  4. EPIVIR [Concomitant]
     Indication: HIV INFECTION
     Dosage: 10MG PER DAY
  5. MARAVIROC [Suspect]
     Indication: HIV INFECTION
     Route: 048
     Dates: start: 20110922, end: 20111017
  6. TRUVADA [Concomitant]
     Dates: start: 20111020, end: 20111123
  7. PENTACARINAT [Concomitant]
     Dates: start: 20111020

REACTIONS (7)
  - LYMPH NODE TUBERCULOSIS [None]
  - EOSINOPHILIA [None]
  - EOSINOPHIL COUNT INCREASED [None]
  - RASH MACULO-PAPULAR [None]
  - BLOOD IMMUNOGLOBULIN E INCREASED [None]
  - RASH PRURITIC [None]
  - FACE OEDEMA [None]
